FAERS Safety Report 9411625 (Version 1)
Quarter: 2013Q3

REPORT INFORMATION
  Report Type: Report from Study
  Country: GB (occurrence: GB)
  Receive Date: 20130722
  Receipt Date: 20130722
  Transmission Date: 20140515
  Serious: Yes (Death)
  Sender: FDA-Public Use
  Company Number: GB-CELGENE-167-C5013-13061120

PATIENT
  Age: 85 Year
  Sex: Male
  Weight: 55.4 kg

DRUGS (3)
  1. PLACEBO FOR CC-5013 [Suspect]
     Indication: PLASMA CELL MYELOMA
     Route: 048
     Dates: start: 20071004, end: 20101006
  2. MELPHALAN [Suspect]
     Indication: PLASMA CELL MYELOMA
     Route: 065
     Dates: start: 20071004, end: 20101006
  3. PREDNISONE [Suspect]
     Indication: PLASMA CELL MYELOMA
     Route: 065
     Dates: start: 20071004, end: 20101006

REACTIONS (1)
  - Transitional cell cancer of renal pelvis and ureter metastatic [Fatal]
